FAERS Safety Report 7902997 (Version 10)
Quarter: 2012Q4

REPORT INFORMATION
  Report Type: 
  Country: US (occurrence: US)
  Receive Date: 20110418
  Receipt Date: 20121031
  Transmission Date: 20130627
  Serious: Yes (Hospitalization, Other)
  Sender: FDA-Public Use
  Company Number: US-ALEXION-A201100412

PATIENT
  Age: 69 Year
  Sex: Female
  Weight: 61 kg

DRUGS (14)
  1. SOLIRIS 300MG [Suspect]
     Indication: PAROXYSMAL NOCTURNAL HAEMOGLOBINURIA
     Dosage: 600 mg, qw
     Route: 042
     Dates: start: 20110310, end: 20110331
  2. SOLIRIS 300MG [Suspect]
     Dosage: 900 mg, q2w
     Route: 042
     Dates: start: 20110407, end: 20110707
  3. SOLIRIS 300MG [Suspect]
     Dosage: 900 mg, q2w
     Route: 042
     Dates: start: 20110825
  4. ARANESP [Concomitant]
     Indication: HAEMOGLOBIN DECREASED
     Dosage: 300 ug, q2w prn for hgb {11.8
     Route: 058
  5. HORMONES NOS [Concomitant]
     Indication: HORMONE REPLACEMENT THERAPY
     Dosage: UNK
  6. LEVOTHYROXINE [Concomitant]
     Dosage: 0.75 ug, qd
     Route: 048
  7. ALENDRONATE SODIUM [Concomitant]
     Dosage: 70 mg, qw
  8. PAROXETINE [Concomitant]
     Dosage: 10 mg, qd
     Route: 048
  9. MULTIVITAMIN [Concomitant]
     Dosage: UNK, qd
  10. CALCIUM [Concomitant]
     Dosage: 600 mg, bid
  11. VITAMIN D [Concomitant]
     Dosage: 1000 Iu, qd
  12. FOLIC ACID [Concomitant]
     Dosage: 100 mg, qd
  13. GLUCOSAMINE/CHONDROITIN [Concomitant]
     Dosage: UNK, qd
     Route: 048
  14. CYCLOSPORIN [Concomitant]
     Dosage: UNK

REACTIONS (25)
  - Dizziness [Unknown]
  - Myelodysplastic syndrome [Not Recovered/Not Resolved]
  - Condition aggravated [Not Recovered/Not Resolved]
  - Aplastic anaemia [Unknown]
  - Oral disorder [Recovered/Resolved]
  - Dyspnoea exertional [Not Recovered/Not Resolved]
  - Oedema peripheral [Not Recovered/Not Resolved]
  - Catheter placement [Not Recovered/Not Resolved]
  - Hypertension [Recovering/Resolving]
  - Drug ineffective [Unknown]
  - Clonal evolution [Recovering/Resolving]
  - Haemolysis [Unknown]
  - Blood glucose increased [Unknown]
  - Blood potassium decreased [Unknown]
  - Chromaturia [Unknown]
  - Gait disturbance [Unknown]
  - Decreased appetite [Unknown]
  - Flushing [Unknown]
  - Feeling abnormal [Unknown]
  - Oropharyngeal pain [Unknown]
  - Fatigue [Not Recovered/Not Resolved]
  - Cough [Unknown]
  - Contusion [Recovered/Resolved]
  - Headache [Recovered/Resolved]
  - Muscle spasms [Not Recovered/Not Resolved]
